FAERS Safety Report 18177686 (Version 1)
Quarter: 2020Q3

REPORT INFORMATION
  Report Type: Spontaneous
  Country: DE (occurrence: DE)
  Receive Date: 20200821
  Receipt Date: 20200821
  Transmission Date: 20201103
  Serious: Yes (Hospitalization)
  Sender: FDA-Public Use
  Company Number: DE-TEVA-2020-DE-1815705

PATIENT
  Age: 68 Year
  Sex: Male

DRUGS (13)
  1. VINORELBINE [Suspect]
     Active Substance: VINORELBINE TARTRATE
     Dosage: LAST 14122019
  2. ATORVASTATIN [Concomitant]
     Active Substance: ATORVASTATIN
     Dosage: 20 MILLIGRAM DAILY;  0?0?1?0
     Route: 048
  3. HYDROMORPHON [Concomitant]
     Active Substance: HYDROMORPHONE
     Dosage: 8 MILLIGRAM DAILY;  1?0?1?0,
     Route: 048
  4. BEZAFIBRAT [Concomitant]
     Active Substance: BEZAFIBRATE
     Dosage: 40 MILLIGRAM DAILY; 400 MG, 0?0?1?0
     Route: 048
  5. METAMIZOL [Concomitant]
     Active Substance: METAMIZOLE SODIUM
     Dosage: 1500 MILLIGRAM DAILY; 1?1?1?0
     Route: 048
  6. CISPLATIN. [Suspect]
     Active Substance: CISPLATIN
     Dosage: LAST 14122019
  7. SALBUTAMOL [Concomitant]
     Active Substance: ALBUTEROL
     Dosage: 3.75 MILLIGRAM DAILY;  1?1?1?0, AMPOULES
     Route: 055
  8. METFORMIN/SITAGLIPTIN [Concomitant]
     Active Substance: METFORMIN\SITAGLIPTIN
     Dosage: 2 DOSAGE FORMS DAILY; 1000|50 MG, 1?0?1?0
     Route: 048
  9. TAMSULOSIN [Concomitant]
     Active Substance: TAMSULOSIN
     Dosage: .4 MILLIGRAM DAILY; 1?0?0?0
     Route: 048
  10. INSULIN HUMAN [Concomitant]
     Active Substance: INSULIN HUMAN
     Dosage: 300 IU, BY VALUE
     Route: 058
  11. HYDROCHLOROTHIAZID/IRBESARTAN [Concomitant]
     Dosage: 1 DOSAGE FORMS DAILY; 12.5|300 MG, 0?0?1?0,
     Route: 048
  12. BISOPROLOL [Concomitant]
     Active Substance: BISOPROLOL
     Dosage: 10 MILLIGRAM DAILY; 10 MG, 1?0?0?0
     Route: 048
  13. ALLOPURINOL. [Concomitant]
     Active Substance: ALLOPURINOL
     Dosage: 300 MILLIGRAM DAILY;  0?0?1?0
     Route: 048

REACTIONS (5)
  - Balance disorder [Recovering/Resolving]
  - Fatigue [Recovering/Resolving]
  - Disturbance in attention [Recovering/Resolving]
  - General physical health deterioration [Recovering/Resolving]
  - Weight increased [Recovering/Resolving]
